FAERS Safety Report 6755029-5 (Version None)
Quarter: 2010Q2

REPORT INFORMATION
  Report Type: 
  Country: None (occurrence: None)
  Receive Date: 20100604
  Receipt Date: 20100311
  Transmission Date: 20101027
  Serious: Yes (Other)
  Sender: FDA-Public Use
  Company Number: US-ASTRAZENECA-2009UW03737

PATIENT
  Age: 49 Year
  Sex: Female
  Weight: 72.6 kg

DRUGS (6)
  1. SEROQUEL [Suspect]
     Indication: SLEEP DISORDER
     Route: 048
     Dates: start: 20060801
  2. SEROQUEL [Suspect]
     Indication: DEPRESSION
     Route: 048
     Dates: start: 20060801
  3. THORAZINE [Concomitant]
  4. ZYPREXA [Concomitant]
  5. METFORMIN [Concomitant]
     Dates: start: 20070312
  6. AMARYL [Concomitant]
     Dates: start: 20070312

REACTIONS (3)
  - BLOOD CHOLESTEROL INCREASED [None]
  - CARDIAC VALVE DISEASE [None]
  - DIABETES MELLITUS [None]
